FAERS Safety Report 4428222-4 (Version None)
Quarter: 2004Q3

REPORT INFORMATION
  Report Type: 
  Country: None (occurrence: None)
  Receive Date: 20040726
  Receipt Date: 20040318
  Transmission Date: 20050211
  Serious: No
  Sender: FDA-Public Use
  Company Number: USA040362373

PATIENT
  Age: 57 Year
  Sex: Female
  Weight: 32 kg

DRUGS (10)
  1. FORTEO [Suspect]
     Indication: OSTEOPOROSIS
     Dosage: 20 UG/1 DAY
     Dates: start: 20031001
  2. METHYLPREDNISOLONE [Concomitant]
  3. HYDROXYCHLOROQUINE SULFATE [Concomitant]
  4. VIOXX [Concomitant]
  5. ZANTAC [Concomitant]
  6. CALCIUM WITH VITIMAN D [Concomitant]
  7. FOLIC ACID [Concomitant]
  8. CALCITRIOL [Concomitant]
  9. CREON [Concomitant]
  10. POTASSIUM [Concomitant]

REACTIONS (1)
  - INJECTION SITE REACTION [None]
